FAERS Safety Report 16667635 (Version 1)
Quarter: 2019Q3

REPORT INFORMATION
  Report Type: Spontaneous
  Country: US (occurrence: US)
  Receive Date: 20190805
  Receipt Date: 20190805
  Transmission Date: 20191004
  Serious: Yes (Hospitalization, Other)
  Sender: FDA-Public Use
  Company Number: US-PFIZER INC-2019330110

PATIENT
  Age: 40 Year
  Sex: Male
  Weight: 72.57 kg

DRUGS (2)
  1. ZYVOX [Suspect]
     Active Substance: LINEZOLID
     Indication: PNEUMONIA
  2. ZYVOX [Suspect]
     Active Substance: LINEZOLID
     Indication: PNEUMONIA NECROTISING
     Dosage: 600 MG, 2X/DAY(EVERY 12 HOURS)
     Route: 042
     Dates: start: 20190612, end: 20190612

REACTIONS (3)
  - Haemoptysis [Recovering/Resolving]
  - Blood culture positive [Unknown]
  - Staphylococcus test positive [Unknown]

NARRATIVE: CASE EVENT DATE: 20190727
